FAERS Safety Report 15618710 (Version 1)
Quarter: 2018Q4

REPORT INFORMATION
  Report Type: Spontaneous
  Country: FR (occurrence: FR)
  Receive Date: 20181114
  Receipt Date: 20181114
  Transmission Date: 20190205
  Serious: Yes (Hospitalization)
  Sender: FDA-Public Use
  Company Number: FR-ALLERGAN-1853364US

PATIENT
  Age: 81 Year
  Sex: Male
  Weight: 71 kg

DRUGS (1)
  1. TROSPIUM CHLORIDE - BP [Suspect]
     Active Substance: TROSPIUM CHLORIDE
     Indication: PROSTATIC ADENOMA
     Dosage: 20 MG, QD
     Route: 048
     Dates: start: 20180526, end: 20180530

REACTIONS (2)
  - Off label use [Unknown]
  - Bladder dilatation [Not Recovered/Not Resolved]

NARRATIVE: CASE EVENT DATE: 20180530
